FAERS Safety Report 11871897 (Version 1)
Quarter: 2015Q4

REPORT INFORMATION
  Report Type: Spontaneous
  Country: US (occurrence: US)
  Receive Date: 20151228
  Receipt Date: 20151228
  Transmission Date: 20160305
  Serious: Yes (Other)
  Sender: FDA-Public Use
  Company Number: US-BAXTER-2015BAX069547

PATIENT
  Age: 59 Year

DRUGS (1)
  1. DIANEAL LOW CALCIUM PERITONEAL DIALYSIS SOLUTION WITH DEXTROSE [Suspect]
     Active Substance: CALCIUM CHLORIDE\DEXTROSE\MAGNESIUM CHLORIDE\SODIUM CHLORIDE\SODIUM LACTATE
     Indication: PERITONEAL DIALYSIS
     Route: 033
     Dates: start: 201507

REACTIONS (5)
  - Peritonitis [Unknown]
  - Peritonitis [Recovered/Resolved]
  - Peritoneal dialysis complication [Unknown]
  - Peritonitis bacterial [Unknown]
  - Peritoneal effluent abnormal [Unknown]

NARRATIVE: CASE EVENT DATE: 201508
